FAERS Safety Report 8548201-5 (Version None)
Quarter: 2012Q3

REPORT INFORMATION
  Report Type: 
  Country: None (occurrence: None)
  Receive Date: 20120730
  Receipt Date: 20120720
  Transmission Date: 20120928
  Serious: No
  Sender: FDA-Public Use
  Company Number: US-BIOGENIDEC-2012BI005061

PATIENT
  Sex: Female

DRUGS (4)
  1. AVONEX [Suspect]
     Route: 030
     Dates: start: 20080311, end: 20090125
  2. AVONEX [Suspect]
     Route: 030
     Dates: start: 20090515
  3. AVONEX [Suspect]
     Route: 030
  4. AVONEX [Suspect]
     Indication: MULTIPLE SCLEROSIS
     Route: 030
     Dates: start: 20031222, end: 20050823

REACTIONS (3)
  - NERVOUSNESS [None]
  - LIVER FUNCTION TEST ABNORMAL [None]
  - HEPATIC ENZYME INCREASED [None]
